FAERS Safety Report 4579702-2 (Version None)
Quarter: 2005Q1

REPORT INFORMATION
  Report Type: 
  Country: None (occurrence: None)
  Receive Date: 20050214
  Receipt Date: 20030103
  Transmission Date: 20050727
  Serious: Yes (Disabling, Congenital Anomaly)
  Sender: FDA-Public Use
  Company Number: FR-ABBOTT-03P-056-0207583-00

PATIENT
  Age: 1 Day
  Sex: Female
  Weight: 3.12 kg

DRUGS (5)
  1. DEPAKENE [Suspect]
     Indication: DRUG EXPOSURE DURING PREGNANCY
  2. DEPAKENE [Suspect]
  3. CARBAMAZEPINE [Suspect]
     Indication: DRUG EXPOSURE DURING PREGNANCY
  4. CARBAMAZEPINE [Suspect]
  5. CLONAZEPAM [Suspect]
     Indication: DRUG EXPOSURE DURING PREGNANCY

REACTIONS (4)
  - DRUG EXPOSURE DURING PREGNANCY [None]
  - HIP DYSPLASIA [None]
  - MOBILITY DECREASED [None]
  - TALIPES [None]
